FAERS Safety Report 19822716 (Version 1)
Quarter: 2021Q3

REPORT INFORMATION
  Report Type: Spontaneous
  Country: BR (occurrence: BR)
  Receive Date: 20210913
  Receipt Date: 20210913
  Transmission Date: 20211014
  Serious: Yes (Other)
  Sender: FDA-Public Use
  Company Number: BR-COLLEGIUM PHARMACEUTICAL, INC.-2021CGM01008

PATIENT
  Age: 85 Year
  Sex: Male

DRUGS (2)
  1. CIPROFLOXACIN. [Concomitant]
     Active Substance: CIPROFLOXACIN
     Dosage: UNK
  2. TAPENTADOL [Suspect]
     Active Substance: TAPENTADOL
     Indication: INTERVERTEBRAL DISC DISORDER
     Dosage: 1 DOSAGE FORM, EVERY 12 HOURS

REACTIONS (3)
  - Delirium [Recovered/Resolved]
  - Oxygen saturation decreased [Recovered/Resolved]
  - Asthmatic crisis [Recovered/Resolved]
